FAERS Safety Report 25452062 (Version 1)
Quarter: 2025Q2

REPORT INFORMATION
  Report Type: Spontaneous
  Country: US (occurrence: None)
  Receive Date: 20250617
  Receipt Date: 20250617
  Transmission Date: 20250717
  Serious: Yes (Other)
  Sender: FDA-CTU
  Company Number: None

PATIENT
  Age: 68 Year
  Sex: Male

DRUGS (1)
  1. SIMLANDI [Suspect]
     Active Substance: ADALIMUMAB-RYVK
     Indication: Ankylosing spondylitis
     Route: 058
     Dates: start: 20250507, end: 20250610

REACTIONS (4)
  - Heart rate abnormal [None]
  - Blood pressure increased [None]
  - Rash [None]
  - Malaise [None]

NARRATIVE: CASE EVENT DATE: 20250610
